FAERS Safety Report 24242868 (Version 1)
Quarter: 2024Q3

REPORT INFORMATION
  Report Type: Spontaneous
  Country: GB (occurrence: GB)
  Receive Date: 20240823
  Receipt Date: 20240823
  Transmission Date: 20241017
  Serious: Yes (Other)
  Sender: RANBAXY
  Company Number: GB-SUN PHARMACEUTICAL INDUSTRIES LTD-2024RR-463661

PATIENT
  Age: 34 Year
  Sex: Female

DRUGS (1)
  1. BUPRENORPHINE [Suspect]
     Active Substance: BUPRENORPHINE
     Indication: Adverse drug reaction
     Dosage: UNK
     Route: 065
     Dates: start: 20240731, end: 20240805

REACTIONS (4)
  - Aggression [Recovered/Resolved]
  - Aggression [Recovered/Resolved]
  - Intentional self-injury [Recovered/Resolved]
  - Affect lability [Recovered/Resolved]

NARRATIVE: CASE EVENT DATE: 20240731
